APPROVED DRUG PRODUCT: NEOSTIGMINE METHYLSULFATE
Active Ingredient: NEOSTIGMINE METHYLSULFATE
Strength: 5MG/10ML (0.5MG/ML)
Dosage Form/Route: SOLUTION;INTRAVENOUS
Application: A210051 | Product #001 | TE Code: AP
Applicant: AMNEAL EU LTD
Approved: Jun 15, 2018 | RLD: No | RS: No | Type: RX